FAERS Safety Report 4308605-3 (Version None)
Quarter: 2004Q1

REPORT INFORMATION
  Report Type: 
  Country: None (occurrence: None)
  Receive Date: 20040226
  Receipt Date: 20030107
  Transmission Date: 20041129
  Serious: No
  Sender: FDA-Public Use
  Company Number: 105539

PATIENT
  Age: 14 Year
  Sex: Female
  Weight: 41 kg

DRUGS (2)
  1. NUTROPIN [Suspect]
     Indication: TURNER'S SYNDROME
     Dosage: 2.5 MG, QD, SUBCUTANEOUS
     Route: 058
     Dates: start: 20020325
  2. PREMARIN [Concomitant]

REACTIONS (1)
  - SCOLIOSIS [None]
